FAERS Safety Report 6071887-4 (Version None)
Quarter: 2009Q1

REPORT INFORMATION
  Report Type: 
  Country: None (occurrence: None)
  Receive Date: 20090210
  Receipt Date: 20090202
  Transmission Date: 20090719
  Serious: Yes (Other)
  Sender: FDA-Public Use
  Company Number: US-NOVOPROD-283743

PATIENT
  Age: 58 Year
  Sex: Female

DRUGS (2)
  1. NOVOLOG [Suspect]
     Indication: TYPE 2 DIABETES MELLITUS
     Route: 058
     Dates: start: 20081201
  2. LOVENOX [Concomitant]
     Indication: THROMBOSIS
     Dosage: UNKNOWN
     Route: 058

REACTIONS (2)
  - LABORATORY TEST ABNORMAL [None]
  - NASAL POLYPS [None]
